FAERS Safety Report 10135986 (Version 2)
Quarter: 2014Q2

REPORT INFORMATION
  Report Type: Spontaneous
  Country: US (occurrence: US)
  Receive Date: 20140429
  Receipt Date: 20140527
  Transmission Date: 20141212
  Serious: Yes (Life-Threatening, Hospitalization, Other)
  Sender: FDA-Public Use
  Company Number: US-B.I. PHARMACEUTICALS,INC./RIDGEFIELD-2014-BI-18184BP

PATIENT
  Age: 70 Year
  Sex: Female

DRUGS (23)
  1. SPIRIVA [Suspect]
     Indication: PRODUCT USED FOR UNKNOWN INDICATION
     Route: 065
     Dates: start: 2007
  2. ADVAIR [Suspect]
     Indication: PNEUMONIA
     Dosage: 2 PUF
     Route: 055
     Dates: start: 20020123
  3. SALBUTAMOL SULPHATE [Concomitant]
     Dosage: FORMULATION: ALBUTEROL INHALER
     Route: 065
  4. SALBUTAMOL SULPHATE [Concomitant]
     Dosage: FORMULATION: ALBUTEROL NEBULIZER
     Route: 065
  5. OXYGEN [Concomitant]
     Route: 065
  6. WARFARIN SODIUM [Concomitant]
     Route: 065
  7. DIGOXIN [Concomitant]
     Route: 065
  8. DOCUSATE [Concomitant]
     Route: 065
  9. NEBULIZER [Concomitant]
     Route: 065
  10. FIBER [Concomitant]
     Route: 065
  11. FLUTICASONE PROPIONATE [Concomitant]
     Route: 065
  12. IPRATROP . BR+SALBUTAM. S04 [Concomitant]
     Route: 065
  13. ISOSORBIDE [Concomitant]
     Route: 065
  14. LACTULOSE [Concomitant]
     Route: 065
  15. FRUSEMIDE [Concomitant]
     Route: 065
  16. LORTAB [Concomitant]
     Route: 065
  17. GUAIPHENESIN [Concomitant]
     Route: 065
  18. OMEPRAZOLE [Concomitant]
     Route: 065
  19. CALCIUM CARBONATE+VITAM.D [Concomitant]
     Route: 065
  20. POTASSIUM CHLORIDE [Concomitant]
     Route: 065
  21. THEOPHYLLINE [Concomitant]
     Route: 065
  22. SALMETEROL XINAFOATE [Concomitant]
     Route: 065
  23. SPIRIVA [Concomitant]
     Route: 065

REACTIONS (7)
  - Apparent death [Recovered/Resolved]
  - Myocardial infarction [Recovered/Resolved]
  - Pneumonia [Recovered/Resolved]
  - Pneumonectomy [Recovered/Resolved]
  - Lung neoplasm malignant [Unknown]
  - Transient ischaemic attack [Unknown]
  - Muscular weakness [Unknown]
